FAERS Safety Report 10585193 (Version 1)
Quarter: 2014Q4

REPORT INFORMATION
  Report Type: Spontaneous
  Country: CO (occurrence: None)
  Receive Date: 20141113
  Receipt Date: 20141113
  Transmission Date: 20150529
  Serious: Yes (Life-Threatening, Hospitalization)
  Sender: FDA-Public Use
  Company Number: BD-2014-0143

PATIENT
  Age: 46 Year
  Sex: Female

DRUGS (1)
  1. METOCLOPRAMIDE (METOCLOPRAMIDE) UNKNOWN [Suspect]
     Active Substance: METOCLOPRAMIDE
     Indication: NAUSEA

REACTIONS (11)
  - Dyspnoea [None]
  - Bradycardia [None]
  - Abdominal pain [None]
  - Nausea [None]
  - Swollen tongue [None]
  - Stridor [None]
  - Abdominal distension [None]
  - Cyanosis [None]
  - Vomiting [None]
  - Anaphylactic reaction [None]
  - Sinus arrhythmia [None]
